FAERS Safety Report 9193384 (Version 1)
Quarter: 2013Q1

REPORT INFORMATION
  Report Type: Spontaneous
  Country: US (occurrence: None)
  Receive Date: 20120703
  Receipt Date: 20120703
  Transmission Date: 20140127
  Serious: No
  Sender: FDA-Public Use
  Company Number: PHEH2012US005721

PATIENT
  Age: 57 Year
  Sex: Female
  Weight: 91.2 kg

DRUGS (13)
  1. GILENYA (FTY)CAPSULE, 0.5MG [Suspect]
     Indication: MULTIPLE SCLEROSIS
     Route: 048
     Dates: start: 20120229, end: 20120308
  2. BACLOFEN (BACLOFEN) [Concomitant]
  3. CARAFATE (SUCRALFATE) [Concomitant]
  4. CEREFOLIN (CALCIUM L-METHYLFOLATE, CYANOBALAMIN, PYRIDOXINE HYDROCHLORIDE, RIBOFLAVIN) [Concomitant]
  5. CITRICAL PLUS (CALCIUM CITRATE, COLECALCIFEROL) [Concomitant]
  6. DEXEDRIN (DEXAMFETAMINE) [Concomitant]
  7. DURASIC PATCH [Concomitant]
  8. HYDROCHLOROTHIAZIDE (HYDROCHOLOROTHIAZIDE) [Concomitant]
  9. LISINOPRIL (LISINOPRIL) [Concomitant]
  10. NEXIUM (ESOMERPRAZOLE MAGNESIUM) [Concomitant]
  11. NUVIGIL (ARMODAFINIL) [Concomitant]
  12. TRILEPTAL (OXCARBAZEPINE) [Concomitant]
  13. XANAX (ALPRAZOLAM) [Concomitant]

REACTIONS (7)
  - Retching [None]
  - Vomiting projectile [None]
  - Nausea [None]
  - Headache [None]
  - Depression [None]
  - Fatigue [None]
  - Chest discomfort [None]
